FAERS Safety Report 6049529-3 (Version None)
Quarter: 2009Q1

REPORT INFORMATION
  Report Type: 
  Country: None (occurrence: None)
  Receive Date: 20090121
  Receipt Date: 20090117
  Transmission Date: 20090719
  Serious: Yes (Hospitalization)
  Sender: FDA-Public Use
  Company Number: 08P-087-0493372-00

PATIENT
  Age: 3 Month
  Sex: Female

DRUGS (3)
  1. SYNAGIS [Suspect]
     Indication: ANTIVIRAL PROPHYLAXIS
     Dosage: 78 MG (78 MG, 1 IN 1 D), INTRAMUSCULAR ;    90 MG (90 MG,1 IN 1 D)  INTRAMUSCULAR
     Route: 030
     Dates: start: 20081118, end: 20081118
  2. SYNAGIS [Suspect]
     Indication: ANTIVIRAL PROPHYLAXIS
     Dosage: 78 MG (78 MG, 1 IN 1 D), INTRAMUSCULAR ;    90 MG (90 MG,1 IN 1 D)  INTRAMUSCULAR
     Route: 030
     Dates: start: 20081212, end: 20081212
  3. FERRIC PYROPHOSPHATE, SOLUBLE(FERRIC PYROPHOSPHATE, SOLUBLE) [Concomitant]

REACTIONS (1)
  - APNOEIC ATTACK [None]
